FAERS Safety Report 5423942-7 (Version None)
Quarter: 2007Q3

REPORT INFORMATION
  Report Type: 
  Country: None (occurrence: None)
  Receive Date: 20070823
  Receipt Date: 20070823
  Transmission Date: 20080115
  Serious: Yes (Hospitalization)
  Sender: FDA-Public Use
  Company Number: US-BRISTOL-MYERS SQUIBB COMPANY-13885900

PATIENT
  Sex: Male

DRUGS (2)
  1. SPRYCEL [Suspect]
     Indication: NEOPLASM
     Dates: start: 20070622
  2. GEMCITABINE HCL [Suspect]
     Indication: NEOPLASM
     Route: 042
     Dates: start: 20070626

REACTIONS (3)
  - ABDOMINAL PAIN [None]
  - DEHYDRATION [None]
  - NAUSEA [None]
